FAERS Safety Report 9880602 (Version 1)
Quarter: 2014Q1

REPORT INFORMATION
  Report Type: Spontaneous
  Country: FR (occurrence: FR)
  Receive Date: 20140207
  Receipt Date: 20140207
  Transmission Date: 20141002
  Serious: Yes (Hospitalization)
  Sender: FDA-Public Use
  Company Number: FR-JNJFOC-20140117364

PATIENT
  Age: 73 Year
  Sex: Male

DRUGS (3)
  1. REMINYL [Suspect]
     Indication: PRODUCT USED FOR UNKNOWN INDICATION
     Route: 065
     Dates: end: 20130807
  2. RAMIPRIL [Concomitant]
     Route: 065
  3. CITALOPRAM [Concomitant]
     Route: 065

REACTIONS (4)
  - Sinus bradycardia [Recovered/Resolved]
  - Haemorrhoids [Unknown]
  - Nephroangiosclerosis [Unknown]
  - Anaemia [Unknown]
